FAERS Safety Report 20411242 (Version 1)
Quarter: 2022Q1

REPORT INFORMATION
  Report Type: Spontaneous
  Country: US (occurrence: None)
  Receive Date: 20220201
  Receipt Date: 20220201
  Transmission Date: 20220423
  Serious: No
  Sender: FDA-Public Use
  Company Number: None

PATIENT
  Age: 64 Year
  Sex: Female

DRUGS (1)
  1. IOHEXOL [Suspect]
     Active Substance: IOHEXOL
     Dosage: FREQUENCY : ONCE;?
     Route: 042
     Dates: start: 20211007, end: 20211007

REACTIONS (1)
  - Anaphylactic reaction [None]

NARRATIVE: CASE EVENT DATE: 20211007
